FAERS Safety Report 11752637 (Version 4)
Quarter: 2016Q1

REPORT INFORMATION
  Report Type: Report from Study
  Country: FR (occurrence: FR)
  Receive Date: 20151119
  Receipt Date: 20160301
  Transmission Date: 20160525
  Serious: Yes (Hospitalization)
  Sender: FDA-Public Use
  Company Number: FR-ROCHE-1660904

PATIENT
  Age: 68 Year
  Sex: Female
  Weight: 57 kg

DRUGS (3)
  1. TRASTUZUMAB EMTANSINE [Suspect]
     Active Substance: ADO-TRASTUZUMAB EMTANSINE
     Route: 042
     Dates: start: 20151201
  2. TRASTUZUMAB EMTANSINE [Suspect]
     Active Substance: ADO-TRASTUZUMAB EMTANSINE
     Indication: HER-2 POSITIVE BREAST CANCER
     Dosage: LAST DOSE PRIOR TO SAE: 20/OCT/2015
     Route: 042
     Dates: start: 20140225, end: 20151110
  3. COZAAR [Concomitant]
     Active Substance: LOSARTAN POTASSIUM
     Route: 065
     Dates: start: 2010

REACTIONS (1)
  - Gastroduodenal ulcer [Recovered/Resolved]

NARRATIVE: CASE EVENT DATE: 20151028
